FAERS Safety Report 11467161 (Version 1)
Quarter: 2015Q3

REPORT INFORMATION
  Report Type: Spontaneous
  Country: IT (occurrence: IT)
  Receive Date: 20150908
  Receipt Date: 20150908
  Transmission Date: 20151125
  Serious: Yes (Life-Threatening, Hospitalization)
  Sender: FDA-Public Use
  Company Number: IT-ASTRAZENECA-2015SE86499

PATIENT
  Age: 15814 Day
  Sex: Female

DRUGS (5)
  1. SEROQUEL [Suspect]
     Active Substance: QUETIAPINE FUMARATE
     Indication: OBSESSIVE-COMPULSIVE DISORDER
     Route: 048
     Dates: start: 20150317
  2. TAVOR [Suspect]
     Active Substance: LORAZEPAM
     Indication: INSOMNIA
     Dosage: 2 MG/ML ORAL DROPS,
     Route: 048
     Dates: start: 20150317
  3. FEVARIN [Concomitant]
     Active Substance: FLUVOXAMINE MALEATE
     Indication: MAJOR DEPRESSION
     Route: 048
     Dates: start: 20140101
  4. LAMOTRIGINA EG [Concomitant]
     Indication: BIPOLAR DISORDER
     Route: 048
     Dates: start: 20140101
  5. LAMICTAL [Suspect]
     Active Substance: LAMOTRIGINE
     Indication: BIPOLAR DISORDER
     Route: 048
     Dates: start: 20150317

REACTIONS (1)
  - Coma [Recovered/Resolved]

NARRATIVE: CASE EVENT DATE: 20150317
